FAERS Safety Report 18851267 (Version 1)
Quarter: 2021Q1

REPORT INFORMATION
  Report Type: Spontaneous
  Country: US (occurrence: US)
  Receive Date: 20210205
  Receipt Date: 20210205
  Transmission Date: 20210420
  Serious: No
  Sender: FDA-Public Use
  Company Number: US-SA-2021SA035928

PATIENT
  Sex: Male

DRUGS (1)
  1. DUPIXENT [Suspect]
     Active Substance: DUPILUMAB
     Indication: ILLNESS
     Dosage: QOW
     Route: 065

REACTIONS (4)
  - Hysterectomy [Unknown]
  - Crying [Unknown]
  - Emotional disorder [Unknown]
  - Mood altered [Unknown]

NARRATIVE: CASE EVENT DATE: 202012
